FAERS Safety Report 7715278-6 (Version None)
Quarter: 2011Q3

REPORT INFORMATION
  Report Type: 
  Country: None (occurrence: None)
  Receive Date: 20110829
  Receipt Date: 20110824
  Transmission Date: 20111222
  Serious: Yes (Life-Threatening, Hospitalization)
  Sender: FDA-Public Use
  Company Number: PHHY2011FR75737

PATIENT
  Age: 83 Year
  Sex: Male

DRUGS (5)
  1. STALEVO 100 [Suspect]
     Dosage: 200MG/125MG/31.5MG 5 DF
     Dates: start: 20110804
  2. LOVENOX [Suspect]
     Indication: PARKINSON'S DISEASE
     Dosage: 4000 IU, UNK
  3. STALEVO 100 [Suspect]
     Indication: PARKINSON'S DISEASE
     Dosage: 200MG/125MG/31.5MG
     Dates: start: 20110801, end: 20110802
  4. STALEVO 100 [Suspect]
     Dosage: 200MG/125MG/31.5MG 4 DF
     Dates: start: 20110803, end: 20110803
  5. STALEVO 100 [Suspect]
     Dosage: 200MG/100MG/25MG QID
     Dates: start: 20110809

REACTIONS (5)
  - RENAL FAILURE ACUTE [None]
  - TERMINAL STATE [None]
  - HYPERKALAEMIA [None]
  - RECTAL HAEMORRHAGE [None]
  - DISTURBANCE IN ATTENTION [None]
